FAERS Safety Report 11523460 (Version 1)
Quarter: 2015Q3

REPORT INFORMATION
  Report Type: Spontaneous
  Country: US (occurrence: US)
  Receive Date: 20150918
  Receipt Date: 20150918
  Transmission Date: 20151125
  Serious: Yes (Other)
  Sender: FDA-Public Use
  Company Number: US-BAYER-2015-419346

PATIENT
  Age: 45 Year
  Sex: Male

DRUGS (1)
  1. KOGENATE FS [Suspect]
     Active Substance: ANTIHEMOPHILIC FACTOR, HUMAN RECOMBINANT
     Indication: FACTOR VIII DEFICIENCY
     Dosage: 2000 TOTAL DAILY DOSE, PRN
     Route: 042
     Dates: start: 20141008

REACTIONS (3)
  - Haemarthrosis [None]
  - Blood urine present [Recovered/Resolved]
  - Fracture [None]

NARRATIVE: CASE EVENT DATE: 20150906
